FAERS Safety Report 26085574 (Version 2)
Quarter: 2025Q4

REPORT INFORMATION
  Report Type: Spontaneous
  Country: CA (occurrence: CA)
  Receive Date: 20251125
  Receipt Date: 20251128
  Transmission Date: 20260117
  Serious: Yes (Other)
  Sender: INTERCEPT PHARMACEUTICALS
  Company Number: CA-ADVANZ PHARMA-202511010215

PATIENT
  Age: 68 Year
  Sex: Female

DRUGS (3)
  1. OBETICHOLIC ACID [Suspect]
     Active Substance: OBETICHOLIC ACID
     Indication: Primary biliary cholangitis
     Dosage: 5 MG, QD (OCALIVA) (STOPPED FOR SIX DAYS)
     Dates: start: 20241021, end: 202503
  2. SYNTHROID [Concomitant]
     Active Substance: LEVOTHYROXINE SODIUM
     Indication: Product used for unknown indication
     Dosage: UNK
  3. URSO [Concomitant]
     Active Substance: URSODIOL
     Indication: Product used for unknown indication
     Dosage: 1000 MG, QD
     Dates: start: 20201207

REACTIONS (8)
  - Fracture [Unknown]
  - Osteoporosis [Unknown]
  - Skin disorder [Unknown]
  - Gastrointestinal disorder [Unknown]
  - Bowel movement irregularity [Unknown]
  - Sleep disorder [Unknown]
  - Fatigue [Unknown]
  - Therapy cessation [Unknown]

NARRATIVE: CASE EVENT DATE: 20250301
